FAERS Safety Report 11676073 (Version 1)
Quarter: 2015Q4

REPORT INFORMATION
  Report Type: Spontaneous
  Country: US (occurrence: US)
  Receive Date: 20151028
  Receipt Date: 20151028
  Transmission Date: 20160304
  Serious: Yes (Other)
  Sender: FDA-Public Use
  Company Number: US-TEVA-603425ACC

PATIENT
  Sex: Female
  Weight: 70.37 kg

DRUGS (2)
  1. DULERA INHALER [Concomitant]
     Indication: ASTHMA
  2. PARAGARD T 380A [Suspect]
     Active Substance: COPPER
     Indication: CONTRACEPTION
     Dates: start: 20150828, end: 20151001

REACTIONS (1)
  - Device dislocation [Recovered/Resolved]
